FAERS Safety Report 4683728-8 (Version None)
Quarter: 2005Q2

REPORT INFORMATION
  Report Type: 
  Country: None (occurrence: None)
  Receive Date: 20050607
  Receipt Date: 20050518
  Transmission Date: 20051028
  Serious: Yes (Other)
  Sender: FDA-Public Use
  Company Number: PHBS2005BR07194

PATIENT
  Age: 73 Year
  Sex: Female
  Weight: 75 kg

DRUGS (4)
  1. ZELMAC [Suspect]
     Indication: IRRITABLE BOWEL SYNDROME
     Dosage: 6 MG, QD
     Route: 048
     Dates: start: 20050516, end: 20050516
  2. LISADOR [Concomitant]
     Indication: PAIN
     Dosage: 35 DF, UNK
     Route: 048
  3. VENALOT [Concomitant]
     Dosage: 1 DF, QD
     Route: 048
  4. NATRILIX [Concomitant]
     Indication: HYPERTENSION
     Dosage: 1.5 MG, QD
     Route: 048

REACTIONS (4)
  - BLOOD PRESSURE INCREASED [None]
  - MALAISE [None]
  - PARAESTHESIA [None]
  - SOMNOLENCE [None]
